FAERS Safety Report 23567626 (Version 1)
Quarter: 2024Q1

REPORT INFORMATION
  Report Type: Spontaneous
  Country: BE (occurrence: BE)
  Receive Date: 20240226
  Receipt Date: 20240226
  Transmission Date: 20240409
  Serious: Yes (Other)
  Sender: FDA-Public Use
  Company Number: BE-ABBVIE-5548619

PATIENT
  Sex: Male
  Weight: 77 kg

DRUGS (9)
  1. ADALIMUMAB [Suspect]
     Active Substance: ADALIMUMAB\ISOPROPYL ALCOHOL
     Indication: Crohn^s disease
     Route: 058
     Dates: start: 201608
  2. ADALIMUMAB [Suspect]
     Active Substance: ADALIMUMAB\ISOPROPYL ALCOHOL
     Route: 058
     Dates: start: 201807
  3. RISANKIZUMAB [Suspect]
     Active Substance: RISANKIZUMAB
     Indication: Crohn^s disease
     Dosage: 1200.000MG
     Route: 058
     Dates: start: 202005
  4. RISANKIZUMAB [Suspect]
     Active Substance: RISANKIZUMAB
     Dosage: 360.000MG
     Route: 058
     Dates: start: 202005
  5. RISANKIZUMAB [Suspect]
     Active Substance: RISANKIZUMAB
     Dosage: 600.000MG
     Route: 058
     Dates: start: 201911
  6. RISANKIZUMAB [Suspect]
     Active Substance: RISANKIZUMAB
     Route: 058
  7. BUDESONIDE [Concomitant]
     Active Substance: BUDESONIDE
     Indication: Steroid therapy
     Route: 065
  8. BUDESONIDE [Concomitant]
     Active Substance: BUDESONIDE
     Indication: Steroid therapy
     Route: 065
  9. CHOLESTYRAMINE [Concomitant]
     Active Substance: CHOLESTYRAMINE
     Indication: Product used for unknown indication
     Dosage: 6.000G QD
     Route: 065

REACTIONS (21)
  - Ileocaecal resection [Unknown]
  - Rectal tenesmus [Unknown]
  - Unevaluable event [Unknown]
  - Crohn^s disease [Unknown]
  - Gastrointestinal wall thickening [Unknown]
  - Mucosal ulceration [Unknown]
  - Drug intolerance [Unknown]
  - Anal erosion [Unknown]
  - Coombs direct test positive [Unknown]
  - Crohn^s disease [Unknown]
  - Micturition urgency [Unknown]
  - Lymphadenopathy [Unknown]
  - Unevaluable event [Unknown]
  - Abdominal pain lower [Unknown]
  - Granuloma [Unknown]
  - Mucosal inflammation [Unknown]
  - Frequent bowel movements [Unknown]
  - Abdominal pain [Recovered/Resolved]
  - Therapeutic product effect incomplete [Unknown]
  - Drug ineffective [Not Recovered/Not Resolved]
  - Off label use [Unknown]

NARRATIVE: CASE EVENT DATE: 20191101
